FAERS Safety Report 10918197 (Version 1)
Quarter: 2015Q1

REPORT INFORMATION
  Report Type: Spontaneous
  Country: US (occurrence: US)
  Receive Date: 20150316
  Receipt Date: 20150316
  Transmission Date: 20150721
  Serious: No
  Sender: FDA-Public Use
  Company Number: US-GALDERMA-US14002565

PATIENT
  Age: 55 Year
  Sex: Female

DRUGS (13)
  1. CRESTOR [Concomitant]
     Active Substance: ROSUVASTATIN CALCIUM
     Indication: BLOOD CHOLESTEROL INCREASED
     Dosage: 20 MG
     Route: 048
     Dates: start: 2009
  2. XANAX [Concomitant]
     Active Substance: ALPRAZOLAM
     Indication: ANXIETY
     Route: 048
     Dates: start: 201405
  3. TRI-LUMA [Suspect]
     Active Substance: FLUOCINOLONE ACETONIDE\HYDROQUINONE\TRETINOIN
     Indication: CHLOASMA
     Route: 061
     Dates: start: 20140619, end: 20140701
  4. BYSTOLIC  (NEBIVOLOL) [Concomitant]
     Indication: HYPERTENSION
     Dosage: 5 MG
     Route: 048
     Dates: start: 2009
  5. PROGESTERONE (PREGN-4-ENE-3,20-DIONE; ABBREVIATED AS P4) [Concomitant]
     Indication: FEMALE SEX HORMONE LEVEL
     Dosage: 100 MG
     Route: 048
  6. ESTRADIOL. [Concomitant]
     Active Substance: ESTRADIOL
     Route: 048
  7. VITAMIN D [Concomitant]
     Active Substance: CHOLECALCIFEROL
     Route: 048
  8. PRILOSEC (OMEPRAZOLE) [Concomitant]
     Active Substance: OMEPRAZOLE MAGNESIUM
     Indication: GASTROOESOPHAGEAL REFLUX DISEASE
     Dosage: 40 MG
     Route: 048
     Dates: start: 2011
  9. IBUPROFEN. [Concomitant]
     Active Substance: IBUPROFEN
     Indication: PAIN
     Route: 048
     Dates: start: 2011
  10. HYDROCHLOROTHIAZIDE. [Concomitant]
     Active Substance: HYDROCHLOROTHIAZIDE
     Indication: DIURETIC THERAPY
     Route: 048
     Dates: start: 2009
  11. KLOR-CON (POTASSIUM CHLORIDE) [Concomitant]
     Route: 048
     Dates: start: 2009
  12. FLEXERIL (CYCLOBENZAPRINE) [Concomitant]
     Indication: PAIN
     Route: 048
     Dates: start: 2011
  13. EVAMIST (ESTRADIOL TRANSDERMAL SPRAY) [Concomitant]
     Indication: HOT FLUSH
     Dosage: 2 SPRAYS
     Route: 061
     Dates: start: 2012

REACTIONS (4)
  - Skin hyperpigmentation [Recovered/Resolved]
  - Skin discolouration [Recovered/Resolved]
  - Skin hypopigmentation [Recovered/Resolved]
  - Skin irritation [Recovered/Resolved]

NARRATIVE: CASE EVENT DATE: 20140619
